FAERS Safety Report 10101210 (Version 3)
Quarter: 2014Q2

REPORT INFORMATION
  Report Type: Spontaneous
  Country: NL (occurrence: None)
  Receive Date: 20140422
  Receipt Date: 20140515
  Transmission Date: 20141212
  Serious: Yes (Death, Hospitalization, Other)
  Sender: FDA-Public Use
  Company Number: AUR-APL-2014-04729

PATIENT
  Age: 33 Year
  Sex: Male

DRUGS (1)
  1. RISPERIDONE [Suspect]
     Indication: SCHIZOPHRENIA

REACTIONS (9)
  - Inappropriate antidiuretic hormone secretion [None]
  - Epilepsy [None]
  - Fall [None]
  - Coma [None]
  - Brain oedema [None]
  - Brain herniation [None]
  - Polydipsia psychogenic [None]
  - Abnormal behaviour [None]
  - Hyponatraemia [None]
